FAERS Safety Report 25160941 (Version 2)
Quarter: 2025Q2

REPORT INFORMATION
  Report Type: Spontaneous
  Country: US (occurrence: US)
  Receive Date: 20250404
  Receipt Date: 20250504
  Transmission Date: 20250717
  Serious: Yes (Death, Other)
  Sender: SANOFI AVENTIS
  Company Number: US-SANOFI-02471467

PATIENT
  Age: 79 Year
  Sex: Male

DRUGS (2)
  1. ELITEK [Suspect]
     Active Substance: RASBURICASE
     Indication: Type 2 diabetes mellitus
     Route: 041
     Dates: start: 20250319, end: 20250319
  2. ELITEK [Suspect]
     Active Substance: RASBURICASE
     Indication: Neoplasm malignant

REACTIONS (5)
  - Respiratory failure [Fatal]
  - Cardiac arrest [Fatal]
  - Renal failure [Unknown]
  - Blood uric acid increased [Unknown]
  - Methaemoglobinaemia [Unknown]

NARRATIVE: CASE EVENT DATE: 20250301
